FAERS Safety Report 8968922 (Version 1)
Quarter: 2012Q4

REPORT INFORMATION
  Report Type: 
  Country: IT (occurrence: IT)
  Receive Date: 20121217
  Receipt Date: 20121217
  Transmission Date: 20130627
  Serious: Yes (Hospitalization)
  Sender: FDA-Public Use
  Company Number: IT-BAYER-2012-131163

PATIENT
  Age: 21 Year
  Sex: Female

DRUGS (5)
  1. ASPIRINA [Suspect]
     Indication: DRUG ABUSE
     Dosage: 40 DF, ONCE
     Route: 048
     Dates: start: 20121211, end: 20121211
  2. LORAZEPAM [Concomitant]
     Dosage: Daily dose 2.5 mg
     Route: 048
  3. GABAPENTIN [Concomitant]
     Dosage: Daily dose 300 mg
     Route: 048
  4. SEROQUEL [Concomitant]
     Dosage: Daily dose 800 mg
     Route: 048
  5. TOLEP [Concomitant]
     Dosage: Daily dose 900 mg
     Route: 048

REACTIONS (1)
  - Intentional self-injury [Unknown]
